FAERS Safety Report 5482150-4 (Version None)
Quarter: 2007Q4

REPORT INFORMATION
  Report Type: 
  Country: None (occurrence: None)
  Receive Date: 20071011
  Receipt Date: 20070928
  Transmission Date: 20080405
  Serious: Yes (Death)
  Sender: FDA-Public Use
  Company Number: US-JNJFOC-20071001825

PATIENT
  Age: 5 Month
  Sex: Male

DRUGS (8)
  1. ACETAMINOPHEN [Suspect]
  2. ACETAMINOPHEN [Suspect]
     Indication: NASAL CONGESTION
     Dosage: UNKNOWN
  3. PSEUDOEPHEDRINE HCL [Suspect]
     Indication: NASAL CONGESTION
     Dosage: UNKNOWN
  4. DEXTROMETHORPHAN HYDROBROMIDE [Suspect]
     Indication: NASAL CONGESTION
     Dosage: UNKNOWN
  5. EPHEDRINE SULFATE [Suspect]
     Indication: NASAL CONGESTION
     Dosage: UNKNOWN
  6. CARBINOXAMINE MALEATE [Suspect]
     Indication: NASAL CONGESTION
     Dosage: UNKNOWN
  7. METOCLOPRAMIDE [Suspect]
     Indication: DRUG USE FOR UNKNOWN INDICATION
     Dosage: UNKNOWN
  8. UNSPECIFIED ANTIBIOTIC [Concomitant]

REACTIONS (5)
  - DRUG SCREEN POSITIVE [None]
  - DRUG TOXICITY [None]
  - LOSS OF CONSCIOUSNESS [None]
  - OTORRHOEA [None]
  - PULMONARY CONGESTION [None]
